FAERS Safety Report 9448022 (Version 1)
Quarter: 2013Q3

REPORT INFORMATION
  Report Type: Spontaneous
  Country: FR (occurrence: FR)
  Receive Date: 20130808
  Receipt Date: 20130808
  Transmission Date: 20140515
  Serious: Yes (Hospitalization)
  Sender: FDA-Public Use
  Company Number: FR-SANOFI-AVENTIS-2013SA077486

PATIENT
  Age: 77 Year
  Sex: Female

DRUGS (6)
  1. LOVENOX [Suspect]
     Indication: PRODUCT USED FOR UNKNOWN INDICATION
     Dosage: STRENGTH : 4000 IU/04 ML
     Route: 058
     Dates: start: 20130412, end: 20130430
  2. BACTRIM [Suspect]
     Indication: STAPHYLOCOCCAL INFECTION
     Route: 042
     Dates: start: 20130422, end: 20130503
  3. VANCOMYCIN MYLAN [Suspect]
     Indication: STAPHYLOCOCCAL INFECTION
     Route: 042
     Dates: start: 20130420, end: 20130503
  4. OFLOXACIN [Concomitant]
     Indication: STAPHYLOCOCCAL INFECTION
     Dosage: STRENGTH: 200 MG/40 ML
     Route: 042
     Dates: start: 20130416, end: 20130420
  5. RIFADINE [Concomitant]
     Indication: STAPHYLOCOCCAL INFECTION
     Route: 042
     Dates: start: 20130416, end: 20130420
  6. GENTALLINE [Concomitant]
     Indication: STAPHYLOCOCCAL INFECTION
     Route: 042
     Dates: start: 20130420, end: 20130422

REACTIONS (2)
  - Thrombocytopenia [Recovered/Resolved]
  - Neutropenia [Recovered/Resolved]
